FAERS Safety Report 20201857 (Version 2)
Quarter: 2021Q4

REPORT INFORMATION
  Report Type: Spontaneous
  Country: US (occurrence: US)
  Receive Date: 20211217
  Receipt Date: 20211227
  Transmission Date: 20220303
  Serious: Yes (Other)
  Sender: FDA-Public Use
  Company Number: US-ALLERGAN-2142604US

PATIENT

DRUGS (7)
  1. VRAYLAR [Suspect]
     Active Substance: CARIPRAZINE
     Indication: Major depression
     Dosage: 1.5 MG, QD
     Route: 048
     Dates: start: 20211123, end: 20211129
  2. HYDROCHLOROTHIAZIDE [Concomitant]
     Active Substance: HYDROCHLOROTHIAZIDE
     Dosage: 25 MG
  3. IBUPROFEN [Concomitant]
     Active Substance: IBUPROFEN
     Dosage: 600 MG
  4. AMITRIPTYLINE [Concomitant]
     Active Substance: AMITRIPTYLINE
     Dosage: 25 MG
  5. CITALOPRAM [Concomitant]
     Active Substance: CITALOPRAM HYDROBROMIDE
     Dosage: 10 MG
  6. SILDENAFIL [Concomitant]
     Active Substance: SILDENAFIL
     Indication: Pulmonary hypertension
     Dosage: 20 MG
  7. SUBOXONE [Concomitant]
     Active Substance: BUPRENORPHINE HYDROCHLORIDE\NALOXONE HYDROCHLORIDE
     Route: 060

REACTIONS (1)
  - Palpitations [Recovered/Resolved]

NARRATIVE: CASE EVENT DATE: 20211201
